FAERS Safety Report 24901673 (Version 2)
Quarter: 2025Q4

REPORT INFORMATION
  Report Type: Report from Study
  Country: US (occurrence: US)
  Receive Date: 20250129
  Receipt Date: 20251202
  Transmission Date: 20260118
  Serious: No
  Sender: SANOFI AVENTIS
  Company Number: US-SA-2025SA026816

PATIENT
  Sex: Female
  Weight: 117.93 kg

DRUGS (4)
  1. DUPIXENT [Suspect]
     Active Substance: DUPILUMAB
     Indication: Dermatitis atopic
     Dosage: 300 MG, QOW
     Route: 058
  2. DUPIXENT [Suspect]
     Active Substance: DUPILUMAB
     Dosage: UNK
  3. WEGOVY [Concomitant]
     Active Substance: SEMAGLUTIDE
  4. OLMESARTAN MEDOXOMIL [Concomitant]
     Active Substance: OLMESARTAN MEDOXOMIL

REACTIONS (3)
  - Migraine [Unknown]
  - Accidental exposure to product [Unknown]
  - Exposure via skin contact [Unknown]
